FAERS Safety Report 8281213-8 (Version None)
Quarter: 2012Q2

REPORT INFORMATION
  Report Type: 
  Country: None (occurrence: None)
  Receive Date: 20120413
  Receipt Date: 20120404
  Transmission Date: 20120825
  Serious: No
  Sender: FDA-Public Use
  Company Number: US-BIOGENIDEC-2012BI012123

PATIENT
  Age: 60 Year
  Sex: Female

DRUGS (4)
  1. TYSABRI [Suspect]
     Route: 042
     Dates: start: 20080501
  2. NEURONTIN [Concomitant]
     Indication: BONE PAIN
  3. TYSABRI [Suspect]
     Indication: MULTIPLE SCLEROSIS
     Route: 042
     Dates: start: 20050117
  4. TYSABRI [Suspect]
     Route: 042
     Dates: start: 20061101, end: 20071219

REACTIONS (3)
  - MUSCLE SPASMS [None]
  - CONFUSIONAL STATE [None]
  - BONE PAIN [None]
